FAERS Safety Report 17030060 (Version 6)
Quarter: 2020Q4

REPORT INFORMATION
  Report Type: Other
  Country: CA (occurrence: CA)
  Receive Date: 20191114
  Receipt Date: 20201208
  Transmission Date: 20210113
  Serious: Yes (Other)
  Sender: FDA-Public Use
  Company Number: CA-ROCHE-2205344

PATIENT
  Age: 48 Year
  Sex: Female
  Weight: 90.3 kg

DRUGS (14)
  1. COPAXONE [Concomitant]
     Active Substance: GLATIRAMER ACETATE
  2. RAMIPRIL. [Concomitant]
     Active Substance: RAMIPRIL
  3. EZETIMIBE. [Concomitant]
     Active Substance: EZETIMIBE
  4. DIPHENHYDRAMINE HCL [Concomitant]
     Active Substance: DIPHENHYDRAMINE HYDROCHLORIDE
     Indication: PREMEDICATION
     Route: 048
     Dates: start: 20181019
  5. BACLOFEN. [Concomitant]
     Active Substance: BACLOFEN
  6. RITUXAN [Suspect]
     Active Substance: RITUXIMAB
     Indication: MULTIPLE SCLEROSIS
     Dosage: DAY 1; 15 AND RETREATMENT.
     Route: 042
     Dates: start: 20181019, end: 20200625
  7. ACETAMINOPHEN. [Concomitant]
     Active Substance: ACETAMINOPHEN
     Indication: PREMEDICATION
     Route: 048
     Dates: start: 20181019
  8. METHYLPREDNISOLONE. [Concomitant]
     Active Substance: METHYLPREDNISOLONE
     Indication: PREMEDICATION
     Route: 042
     Dates: start: 20181019
  9. TYLENOL [Concomitant]
     Active Substance: ACETAMINOPHEN
     Indication: PREMEDICATION
     Route: 048
     Dates: start: 20181019
  10. GABAPENTIN. [Concomitant]
     Active Substance: GABAPENTIN
  11. ASPIRIN. [Concomitant]
     Active Substance: ASPIRIN
     Indication: PRODUCT USED FOR UNKNOWN INDICATION
  12. WARFARIN [Concomitant]
     Active Substance: WARFARIN
  13. ROSUVASTATIN. [Concomitant]
     Active Substance: ROSUVASTATIN
  14. BISOPROLOL [Concomitant]
     Active Substance: BISOPROLOL

REACTIONS (20)
  - Pain [Unknown]
  - Erythema [Recovered/Resolved]
  - Infusion related reaction [Recovered/Resolved]
  - Blood pressure systolic abnormal [Unknown]
  - Peripheral coldness [Recovered/Resolved]
  - Blood pressure fluctuation [Unknown]
  - Weight decreased [Unknown]
  - Urticaria [Recovered/Resolved]
  - Adverse drug reaction [Recovered/Resolved]
  - Erythema [Recovered/Resolved]
  - Limb injury [Not Recovered/Not Resolved]
  - Dizziness [Recovered/Resolved]
  - Muscle spasms [Unknown]
  - Swelling face [Recovered/Resolved]
  - Burning sensation [Recovered/Resolved]
  - Blood pressure increased [Unknown]
  - Blood pressure diastolic decreased [Unknown]
  - Flushing [Recovered/Resolved]
  - Fatigue [Unknown]
  - Aortic valve replacement [Unknown]

NARRATIVE: CASE EVENT DATE: 20181019
